FAERS Safety Report 20112821 (Version 3)
Quarter: 2022Q1

REPORT INFORMATION
  Report Type: Spontaneous
  Country: JP (occurrence: JP)
  Receive Date: 20211125
  Receipt Date: 20220114
  Transmission Date: 20220424
  Serious: Yes (Other)
  Sender: FDA-Public Use
  Company Number: JP-UCBSA-2021054799

PATIENT
  Age: 43 Year
  Sex: Female

DRUGS (6)
  1. LEVETIRACETAM [Suspect]
     Active Substance: LEVETIRACETAM
     Indication: Status epilepticus
     Dosage: UNK
     Route: 048
  2. LEVETIRACETAM [Suspect]
     Active Substance: LEVETIRACETAM
     Indication: Off label use
  3. MIDAZOLAM [Concomitant]
     Active Substance: MIDAZOLAM
     Indication: Product used for unknown indication
     Dosage: UNK
  4. DANTROLENE SODIUM [Concomitant]
     Active Substance: DANTROLENE SODIUM
     Indication: Neuroleptic malignant syndrome
     Dosage: UNK
  5. DANTROLENE SODIUM [Concomitant]
     Active Substance: DANTROLENE SODIUM
     Dosage: DOSE REDUCED
  6. DANTROLENE SODIUM [Concomitant]
     Active Substance: DANTROLENE SODIUM
     Dosage: 80 MILLIGRAM

REACTIONS (4)
  - Neuroleptic malignant syndrome [Recovering/Resolving]
  - Lung assist device therapy [Unknown]
  - Cardiovascular disorder [Unknown]
  - Off label use [Unknown]
